FAERS Safety Report 7320439-4 (Version None)
Quarter: 2011Q1

REPORT INFORMATION
  Report Type: 
  Country: None (occurrence: None)
  Receive Date: 20110228
  Receipt Date: 20110222
  Transmission Date: 20110831
  Serious: Yes (Other)
  Sender: FDA-Public Use
  Company Number: A0915377A

PATIENT
  Age: 30 Year
  Sex: Female

DRUGS (2)
  1. DULERA TABLET [Suspect]
     Route: 065
  2. ADVAIR DISKUS 100/50 [Suspect]
     Route: 065

REACTIONS (2)
  - COUGH [None]
  - ASTHMA [None]
